FAERS Safety Report 4349198-4 (Version None)
Quarter: 2004Q2

REPORT INFORMATION
  Report Type: 
  Country: None (occurrence: None)
  Receive Date: 20040427
  Receipt Date: 20030806
  Transmission Date: 20050107
  Serious: Yes (Other)
  Sender: FDA-Public Use
  Company Number: 000617

PATIENT
  Sex: 0

DRUGS (3)
  1. ZEVALIN [Suspect]
     Indication: NON-HODGKIN'S LYMPHOMA
     Dosage: 250 MG/M2, SINGLE, RITUXAN DOSE 1, INTRAVENOUS
     Route: 042
     Dates: start: 20030619, end: 20030619
  2. ZEVALIN [Suspect]
     Indication: NON-HODGKIN'S LYMPHOMA
     Dosage: 250 MG/M2, SINGLE, RITUXAN DOSE 1, INTRAVENOUS
     Route: 042
     Dates: start: 20030626, end: 20030626
  3. ZEVALIN [Suspect]
     Indication: NON-HODGKIN'S LYMPHOMA
     Dosage: 250 MG/M2, SINGLE, RITUXAN DOSE 1, INTRAVENOUS
     Route: 042
     Dates: start: 20030626, end: 20030626

REACTIONS (2)
  - NEUTROPENIA [None]
  - THROMBOCYTOPENIA [None]
